FAERS Safety Report 7821938-9 (Version None)
Quarter: 2011Q4

REPORT INFORMATION
  Report Type: 
  Country: None (occurrence: None)
  Receive Date: 20111018
  Receipt Date: 20110531
  Transmission Date: 20120403
  Serious: No
  Sender: FDA-Public Use
  Company Number: US-ASTRAZENECA-2011SE33778

PATIENT

DRUGS (34)
  1. OMEPRAZOLE [Suspect]
     Route: 048
  2. ASMANEX TWISTHALER [Suspect]
     Route: 065
  3. LORAZEPAM [Concomitant]
     Dosage: HALF AS NEEDED UP TO 3 IN 24 HR
  4. TRAMADOL HCL [Concomitant]
     Dosage: UP TO FOUR DAILY, USUALLY 1 OR 2 AT NIGHT
  5. BENADRYL [Concomitant]
     Indication: INSOMNIA
     Dosage: 2 AT NIGHT
  6. FUROSEMIDE [Concomitant]
  7. IRON [Concomitant]
  8. THERA TEARS [Concomitant]
  9. GAS-X [Concomitant]
     Dosage: AFTER EATING AND AS NEEDED
  10. LOSARTAN ENALAPRIL MALEATE [Concomitant]
     Indication: CARDIAC DISORDER
  11. SUCRALFATE [Concomitant]
     Dosage: 1 HOUR BEFORE MEALS
  12. ZEBETA [Concomitant]
     Indication: HYPERTENSION
  13. LOSARTAN ENALAPRIL MALEATE [Concomitant]
     Indication: HYPERTENSION
  14. LORAZEPAM [Concomitant]
     Indication: SLEEP DISORDER
  15. LORAZEPAM [Concomitant]
     Dosage: HALF AS NEEDED UP TO 3 IN 24 HR
  16. NOVOLOG INSULIN PEN [Concomitant]
     Indication: DIABETES MELLITUS
     Dosage: 70/30, 5 UNITS AM, 5 UNITS PM ADJUST AS NEEDED
  17. REGLAN [Concomitant]
     Indication: IMPAIRED GASTRIC EMPTYING
  18. NEXIUM [Concomitant]
     Dosage: 20 MG ONE HOUR BEFORE SUPPER
     Route: 048
  19. TRAMADOL HCL [Concomitant]
     Indication: BURSITIS
  20. SINGULAIR [Concomitant]
  21. CHILDRENS CHEWABLE MULTIVITAMIN [Concomitant]
  22. SYMBICORT [Suspect]
     Route: 055
  23. VITAMIN D [Concomitant]
     Indication: VITAMIN D DECREASED
     Dosage: 50000 UNITS TWISE A MONTH
  24. VITAMIN B COMPLEX CAP [Concomitant]
  25. BENADRYL [Concomitant]
     Indication: HYPERSENSITIVITY
     Dosage: 2 AT NIGHT
  26. OTHER STEROID INHALERS [Suspect]
     Route: 055
  27. SYNTHROID [Concomitant]
     Indication: HYPOTHYROIDISM
  28. CRESTOR [Concomitant]
     Indication: BLOOD CHOLESTEROL ABNORMAL
     Route: 048
  29. ZEBETA [Concomitant]
     Indication: CARDIAC DISORDER
  30. ALIGN [Concomitant]
     Dosage: 1 DAILY
  31. TYLENOL-500 [Concomitant]
     Indication: ARTHRITIS
     Dosage: 650MG TWO UP TO THREE DOSES DAILY
  32. LORAZEPAM [Concomitant]
     Indication: ANXIETY
  33. PROAIR HFA [Concomitant]
     Dosage: 2 PUFFS EVERY FOUR HOURS, AS NEEDED
  34. ICAPS EYE VITAMINS [Concomitant]

REACTIONS (4)
  - DRUG HYPERSENSITIVITY [None]
  - FUNGAL INFECTION [None]
  - DRUG INEFFECTIVE [None]
  - GASTROOESOPHAGEAL REFLUX DISEASE [None]
